FAERS Safety Report 8936645 (Version 3)
Quarter: 2014Q2

REPORT INFORMATION
  Report Type: Spontaneous
  Country: TN (occurrence: TN)
  Receive Date: 20121130
  Receipt Date: 20131018
  Transmission Date: 20141212
  Serious: Yes (Other)
  Sender: FDA-Public Use
  Company Number: TN-PFIZER INC-2012297527

PATIENT
  Age: 45 Day
  Sex: Male

DRUGS (1)
  1. XYLOCAINE [Suspect]
     Indication: LOCAL ANAESTHESIA
     Dosage: 3 MG/KG

REACTIONS (2)
  - Neurotoxicity [Recovered/Resolved]
  - Convulsion [Recovered/Resolved]
